FAERS Safety Report 6474997-2 (Version None)
Quarter: 2009Q4

REPORT INFORMATION
  Report Type: 
  Country: None (occurrence: None)
  Receive Date: 20091204
  Receipt Date: 20090706
  Transmission Date: 20100525
  Serious: No
  Sender: FDA-Public Use
  Company Number: US-ELI_LILLY_AND_COMPANY-US200903006457

PATIENT
  Age: 78 Year
  Sex: Female
  Weight: 71.746 kg

DRUGS (8)
  1. CYMBALTA [Suspect]
     Indication: MAJOR DEPRESSION
     Dosage: 20 MG, DAILY (1/D)
  2. CYMBALTA [Suspect]
     Dosage: 40 MG, UNK
  3. CYMBALTA [Suspect]
     Dosage: 60 MG, UNK
  4. DEPAKOTE [Concomitant]
  5. RISPERIDONE [Concomitant]
  6. PREDNISONE [Concomitant]
     Dosage: 5 MG, DAILY (1/D)
     Dates: start: 20090604
  7. LEVOTHYROXINE SODIUM [Concomitant]
     Dosage: 25 UG, DAILY (1/D)
     Dates: start: 20090604
  8. SINGULAIR [Concomitant]
     Dosage: 10 MG, DAILY (1/D)
     Dates: start: 20090604

REACTIONS (1)
  - WEIGHT DECREASED [None]
